FAERS Safety Report 14854008 (Version 1)
Quarter: 2018Q2

REPORT INFORMATION
  Report Type: Spontaneous
  Country: DE (occurrence: DE)
  Receive Date: 20180507
  Receipt Date: 20180507
  Transmission Date: 20180711
  Serious: Yes (Other)
  Sender: FDA-Public Use
  Company Number: PHHY2018DE003255

PATIENT
  Sex: Male

DRUGS (2)
  1. CALCIPOTRIOL HEXAL [Suspect]
     Active Substance: CALCIPOTRIENE
     Dosage: UNK
     Route: 047
  2. CALCIPOTRIOL HEXAL [Suspect]
     Active Substance: CALCIPOTRIENE
     Indication: SKIN DISORDER
     Dosage: UNK
     Route: 065

REACTIONS (3)
  - Incorrect route of drug administration [Unknown]
  - Eye burns [Unknown]
  - Application site burn [None]
